FAERS Safety Report 6722424-X (Version None)
Quarter: 2010Q2

REPORT INFORMATION
  Report Type: 
  Country: None (occurrence: None)
  Receive Date: 20100512
  Receipt Date: 20100503
  Transmission Date: 20101027
  Serious: Yes (Other)
  Sender: FDA-Public Use
  Company Number: US-BAYER-201021481NA

PATIENT
  Age: 35 Year
  Sex: Female
  Weight: 91 kg

DRUGS (3)
  1. ULTRAVIST 300 [Suspect]
     Indication: ANGIOGRAM
     Dosage: TOTAL DAILY DOSE: 90 ML  UNIT DOSE: 200 ML
     Route: 042
     Dates: start: 20100503, end: 20100503
  2. METFORMIN HYDROCHLORIDE [Concomitant]
  3. YASMIN [Concomitant]

REACTIONS (7)
  - COUGH [None]
  - DYSPNOEA [None]
  - LARYNGEAL OEDEMA [None]
  - NASAL CONGESTION [None]
  - RASH [None]
  - RESPIRATORY TRACT CONGESTION [None]
  - URTICARIA [None]
